FAERS Safety Report 9612054 (Version 1)
Quarter: 2013Q4

REPORT INFORMATION
  Report Type: Spontaneous
  Country: US (occurrence: US)
  Receive Date: 20131010
  Receipt Date: 20131010
  Transmission Date: 20140711
  Serious: No
  Sender: FDA-Public Use
  Company Number: US-ASTELLAS-2013US009006

PATIENT
  Sex: Female
  Weight: 91 kg

DRUGS (2)
  1. MYRBETRIQ [Suspect]
     Indication: MICTURITION URGENCY
     Dosage: 50 MG, UID/QD
     Route: 048
  2. VESICARE [Concomitant]
     Indication: MICTURITION URGENCY
     Dosage: 5 MG, UID/QD
     Route: 048

REACTIONS (2)
  - Intentional drug misuse [Unknown]
  - Drug ineffective [Unknown]
